FAERS Safety Report 4881930-3 (Version None)
Quarter: 2006Q1

REPORT INFORMATION
  Report Type: 
  Country: None (occurrence: None)
  Receive Date: 20060111
  Receipt Date: 20060111
  Transmission Date: 20060701
  Serious: Yes (Hospitalization)
  Sender: FDA-Public Use
  Company Number: None

PATIENT
  Age: 79 Year
  Sex: Male
  Weight: 68.0396 kg

DRUGS (8)
  1. XELODA [Suspect]
     Indication: PANCREATIC CARCINOMA
     Dosage: 1500 MG BID PO 5/7 DAYS
     Route: 048
     Dates: start: 20051004, end: 20051107
  2. ZOCOR [Concomitant]
  3. ATENOLOL [Concomitant]
  4. ASPIRIN [Concomitant]
  5. CENTRUM SILVER [Concomitant]
  6. PROTONIX [Concomitant]
  7. VIOKASE [Concomitant]
  8. AMBIEN [Concomitant]

REACTIONS (10)
  - CONFABULATION [None]
  - CONFUSIONAL STATE [None]
  - DELIRIUM [None]
  - DISORIENTATION [None]
  - DYSPHAGIA [None]
  - HYPOXIA [None]
  - PULMONARY EMBOLISM [None]
  - RESPIRATORY DISTRESS [None]
  - RESPIRATORY FAILURE [None]
  - TACHYCARDIA [None]
